FAERS Safety Report 14080072 (Version 1)
Quarter: 2017Q4

REPORT INFORMATION
  Report Type: Spontaneous
  Country: US (occurrence: US)
  Receive Date: 20171012
  Receipt Date: 20171012
  Transmission Date: 20180321
  Serious: No
  Sender: FDA-Public Use
  Company Number: US-MYLANLABS-2017M1028154

PATIENT
  Age: 84 Year
  Sex: Female

DRUGS (1)
  1. AMITRIPTYLINE HYDROCHLORIDE TABLETS, USP [Suspect]
     Active Substance: AMITRIPTYLINE HYDROCHLORIDE
     Indication: CHRONIC FATIGUE SYNDROME
     Dosage: 1 DF, HS
     Route: 048
     Dates: start: 199103

REACTIONS (1)
  - Pharyngeal paraesthesia [Recovered/Resolved]

NARRATIVE: CASE EVENT DATE: 20170506
